FAERS Safety Report 10171063 (Version 2)
Quarter: 2014Q2

REPORT INFORMATION
  Report Type: Spontaneous
  Country: US (occurrence: US)
  Receive Date: 20140514
  Receipt Date: 20140609
  Transmission Date: 20141212
  Serious: Yes (Hospitalization)
  Sender: FDA-Public Use
  Company Number: US-JNJFOC-20140504212

PATIENT
  Age: 63 Year
  Sex: Female
  Weight: 77.11 kg

DRUGS (4)
  1. DURAGESIC [Suspect]
     Indication: PAIN
     Route: 062
  2. VALIUM [Concomitant]
     Indication: NEUROPATHY PERIPHERAL
     Route: 048
  3. VALIUM [Concomitant]
     Indication: MUSCLE SPASMS
     Route: 048
  4. METHADONE [Concomitant]
     Indication: PAIN
     Route: 048

REACTIONS (5)
  - Staphylococcal infection [Recovered/Resolved]
  - Pain [Not Recovered/Not Resolved]
  - Cystitis [Unknown]
  - Drug dose omission [Not Recovered/Not Resolved]
  - Body height decreased [Unknown]
